FAERS Safety Report 11581701 (Version 1)
Quarter: 2015Q4

REPORT INFORMATION
  Report Type: Spontaneous
  Country: US (occurrence: US)
  Receive Date: 20151001
  Receipt Date: 20151001
  Transmission Date: 20160304
  Serious: Yes (Hospitalization)
  Sender: FDA-Public Use
  Company Number: US-ROCHE-677457

PATIENT
  Age: 45 Year
  Sex: Female

DRUGS (3)
  1. RIBASPHERE [Suspect]
     Active Substance: RIBAVIRIN
     Indication: HEPATITIS C
     Route: 065
     Dates: start: 20091219, end: 201002
  2. RIBASPHERE [Suspect]
     Active Substance: RIBAVIRIN
     Route: 065
  3. PEGASYS [Suspect]
     Active Substance: PEGINTERFERON ALFA-2A
     Indication: HEPATITIS C
     Dosage: FORM: PRE-FILLED SYRINGE (PFS)
     Route: 065

REACTIONS (14)
  - Fatigue [Unknown]
  - Back pain [Unknown]
  - Anaemia [Recovering/Resolving]
  - Disorientation [Not Recovered/Not Resolved]
  - White blood cell count decreased [Unknown]
  - Decreased appetite [Not Recovered/Not Resolved]
  - Hepatic enzyme increased [Unknown]
  - Alopecia [Unknown]
  - Pneumonia [Recovered/Resolved]
  - Nausea [Unknown]
  - Cough [Unknown]
  - Dysphonia [Unknown]
  - Sinusitis [Unknown]
  - Confusional state [Not Recovered/Not Resolved]

NARRATIVE: CASE EVENT DATE: 20091226
